FAERS Safety Report 5300893-X (Version None)
Quarter: 2007Q2

REPORT INFORMATION
  Report Type: 
  Country: None (occurrence: None)
  Receive Date: 20070418
  Receipt Date: 20070406
  Transmission Date: 20071010
  Serious: Yes (Hospitalization)
  Sender: FDA-Public Use
  Company Number: FR-ROCHE-476743

PATIENT
  Age: 42 Year
  Sex: Female
  Weight: 51 kg

DRUGS (5)
  1. PEG-INTERFERON ALFA 2A (RO 25-8310) [Suspect]
     Indication: HEPATITIS C
     Route: 058
     Dates: start: 20061002, end: 20061211
  2. RIBAVIRIN [Suspect]
     Indication: HEPATITIS C
     Route: 048
     Dates: start: 20061002, end: 20061224
  3. VX-950 [Suspect]
     Indication: HEPATITIS C
     Route: 048
     Dates: start: 20061002, end: 20061224
  4. TARDYFERON [Concomitant]
     Route: 048
     Dates: start: 20061127
  5. SPECIAFOLDINE [Concomitant]
     Route: 048
     Dates: start: 20061127

REACTIONS (2)
  - DEPRESSION [None]
  - SUICIDE ATTEMPT [None]
